FAERS Safety Report 7508466-5 (Version None)
Quarter: 2011Q2

REPORT INFORMATION
  Report Type: 
  Country: None (occurrence: None)
  Receive Date: 20110527
  Receipt Date: 20110511
  Transmission Date: 20111010
  Serious: Yes (Hospitalization, Other)
  Sender: FDA-Public Use
  Company Number: BR-BAYER-201017091LA

PATIENT
  Age: 77 Year
  Sex: Female
  Weight: 64 kg

DRUGS (8)
  1. NEXAVAR [Suspect]
     Indication: HEPATIC NEOPLASM MALIGNANT
     Dosage: 2 TAB TWICE A DAY
     Route: 048
     Dates: start: 20100201, end: 20100301
  2. NEXAVAR [Suspect]
     Dosage: 1 TAB TWICE A DAY
     Route: 048
     Dates: start: 20100301
  3. DIOVAN [Concomitant]
     Indication: BLOOD PRESSURE ABNORMAL
     Dosage: 2 TABS A DAY, START DATE MORE THAN 10 YEARS AGO
     Route: 048
  4. CARDIZEM [Concomitant]
     Indication: UNEVALUABLE EVENT
     Dosage: 80 MG, UNK
     Route: 048
  5. OMEPRAZOLE [Concomitant]
     Indication: GASTRIC DISORDER
     Dosage: 25 MG, OM
     Route: 048
     Dates: start: 20030101
  6. NEXAVAR [Suspect]
     Dosage: 1 TABLET IN THE MORNING AND ONE TABLET AT NIGHT
     Route: 048
  7. ATENOLOL [Concomitant]
     Indication: BLOOD PRESSURE ABNORMAL
     Dosage: 1 TABLET A DAY
     Route: 048
  8. CYCLOSPORINE [Concomitant]
     Indication: PROPHYLAXIS AGAINST TRANSPLANT REJECTION
     Dosage: 25 MG, UNK
     Route: 048

REACTIONS (9)
  - BURNING SENSATION [None]
  - ALOPECIA [None]
  - CEREBROVASCULAR ACCIDENT [None]
  - HEADACHE [None]
  - SKIN HYPERTROPHY [None]
  - HYPERKERATOSIS [None]
  - OEDEMA PERIPHERAL [None]
  - INFLAMMATION [None]
  - PAIN IN EXTREMITY [None]
